FAERS Safety Report 9059786 (Version 1)
Quarter: 2013Q1

REPORT INFORMATION
  Report Type: Spontaneous
  Country: US (occurrence: None)
  Receive Date: 20130206
  Receipt Date: 20130206
  Transmission Date: 20140127
  Serious: Yes (Other)
  Sender: FDA-Public Use
  Company Number: None

PATIENT
  Age: 69 Year
  Sex: Male
  Weight: 77.11 kg

DRUGS (2)
  1. ATORVASTATIN [Suspect]
     Indication: BLOOD CHOLESTEROL
     Dates: start: 20120601, end: 20120701
  2. PRAVASTATIN [Suspect]
     Indication: BLOOD CHOLESTEROL
     Dates: start: 20120701, end: 20120801

REACTIONS (3)
  - Myalgia [None]
  - Liver injury [None]
  - Cardiac arrest [None]
